FAERS Safety Report 4541029-2 (Version None)
Quarter: 2004Q4

REPORT INFORMATION
  Report Type: 
  Country: None (occurrence: None)
  Receive Date: 20041228
  Receipt Date: 20041221
  Transmission Date: 20050328
  Serious: Yes (Hospitalization)
  Sender: FDA-Public Use
  Company Number: JP-2004-030945

PATIENT
  Age: 52 Year
  Sex: Female

DRUGS (2)
  1. BETAFERON (INTERFERON BETA-1B)INJECTION 250 UG [Suspect]
     Indication: MULTIPLE SCLEROSIS
     Dosage: SEE IMAGE
     Route: 058
     Dates: start: 20020610, end: 20020618
  2. BETAFERON (INTERFERON BETA-1B)INJECTION 250 UG [Suspect]
     Indication: MULTIPLE SCLEROSIS
     Dosage: SEE IMAGE
     Route: 058
     Dates: start: 20020720, end: 20020726

REACTIONS (6)
  - BILIARY TRACT DISORDER [None]
  - CHOLESTASIS [None]
  - HEPATIC NECROSIS [None]
  - HEPATITIS [None]
  - HEPATOTOXICITY [None]
  - LIVER DISORDER [None]
